FAERS Safety Report 9375192 (Version 3)
Quarter: 2013Q3

REPORT INFORMATION
  Report Type: Spontaneous
  Country: US (occurrence: US)
  Receive Date: 20130628
  Receipt Date: 20130730
  Transmission Date: 20140515
  Serious: Yes (Hospitalization)
  Sender: FDA-Public Use
  Company Number: US-BAYER-2013-076903

PATIENT
  Age: 24 Year
  Sex: Female
  Weight: 57.6 kg

DRUGS (3)
  1. MIRENA [Suspect]
     Indication: CONTRACEPTION
     Dosage: 20 MCG/24HR, CONT
     Route: 015
     Dates: start: 20130613, end: 20130620
  2. VENTOLIN [Concomitant]
     Dosage: 90 MCG
  3. DICLOFENAC W/MISOPROSTOL [Concomitant]
     Dosage: 75/200 MCG
     Dates: start: 20130613

REACTIONS (7)
  - Dermatitis [Recovered/Resolved]
  - Rash [Recovered/Resolved]
  - Pruritus [Recovered/Resolved]
  - Abdominal distension [Recovered/Resolved]
  - Abdominal pain lower [Recovered/Resolved]
  - Abdominal pain [Recovered/Resolved]
  - Flatulence [Recovered/Resolved]
